FAERS Safety Report 11404141 (Version 1)
Quarter: 2015Q3

REPORT INFORMATION
  Report Type: Spontaneous
  Country: GB (occurrence: GB)
  Receive Date: 20150821
  Receipt Date: 20150821
  Transmission Date: 20151125
  Serious: Yes (Other)
  Sender: FDA-Public Use
  Company Number: GB-TEVA-586340ACC

PATIENT
  Age: 39 Year
  Sex: Female

DRUGS (2)
  1. CONTRACEPTIVE PILL [Concomitant]
  2. METRONIDAZOLE. [Suspect]
     Active Substance: METRONIDAZOLE
     Indication: TOOTH DISORDER
     Dosage: 3 DOSAGE FORMS DAILY;
     Route: 048
     Dates: start: 201507

REACTIONS (3)
  - Rash [Recovered/Resolved]
  - Swelling face [Recovered/Resolved]
  - Local swelling [Recovered/Resolved]
